FAERS Safety Report 10068238 (Version 1)
Quarter: 2014Q2

REPORT INFORMATION
  Report Type: Spontaneous
  Country: US (occurrence: US)
  Receive Date: 20140409
  Receipt Date: 20140409
  Transmission Date: 20141212
  Serious: No
  Sender: FDA-Public Use
  Company Number: US-PFIZER INC-2014097128

PATIENT
  Sex: Male

DRUGS (1)
  1. LIPITOR [Suspect]
     Indication: ANGIOPLASTY
     Dosage: UNK
     Dates: start: 201403

REACTIONS (3)
  - Fatigue [Unknown]
  - Arthralgia [Unknown]
  - Pain in extremity [Unknown]
